FAERS Safety Report 16259550 (Version 4)
Quarter: 2019Q4

REPORT INFORMATION
  Report Type: Spontaneous
  Country: US (occurrence: US)
  Receive Date: 20190501
  Receipt Date: 20191225
  Transmission Date: 20200122
  Serious: Yes (Death, Other)
  Sender: FDA-Public Use
  Company Number: US-ASTRAZENECA-2018SF65591

PATIENT
  Age: 16222 Day
  Sex: Female
  Weight: 76.2 kg

DRUGS (38)
  1. GLIMEPIRIDE. [Concomitant]
     Active Substance: GLIMEPIRIDE
  2. POTASSIUM [Concomitant]
     Active Substance: POTASSIUM
  3. INSULIN [Concomitant]
     Active Substance: INSULIN NOS
  4. CALCITRIOL. [Concomitant]
     Active Substance: CALCITRIOL
     Dosage: 0.25 MCG; DAILY
     Route: 048
     Dates: start: 20160429
  5. LIDOCAINE. [Concomitant]
     Active Substance: LIDOCAINE
     Dosage: 0.25 MCG; DAILY
     Route: 048
     Dates: start: 20160429
  6. OMEPRAZOLE. [Concomitant]
     Active Substance: OMEPRAZOLE
     Route: 048
     Dates: start: 20160412
  7. FUROSEMIDE. [Concomitant]
     Active Substance: FUROSEMIDE
     Indication: HYPERTENSION
     Dates: start: 2013
  8. LANTUS [Concomitant]
     Active Substance: INSULIN GLARGINE
  9. PRILOSEC OTC [Suspect]
     Active Substance: OMEPRAZOLE MAGNESIUM
     Route: 048
     Dates: start: 2014, end: 2017
  10. ONGLYZA [Concomitant]
     Active Substance: SAXAGLIPTIN HYDROCHLORIDE
     Indication: TYPE 1 DIABETES MELLITUS
     Dates: start: 20150817
  11. LOSARTAN. [Concomitant]
     Active Substance: LOSARTAN
     Indication: HYPERTENSION
     Dates: start: 2013, end: 2015
  12. DULOXETINE. [Concomitant]
     Active Substance: DULOXETINE
     Dates: start: 20160412
  13. METOLAZONE. [Concomitant]
     Active Substance: METOLAZONE
     Dates: start: 20160412
  14. TRIAMTERENE. [Concomitant]
     Active Substance: TRIAMTERENE
     Indication: HYPERTENSION
     Dates: start: 2013, end: 2015
  15. BUMETANIDE. [Concomitant]
     Active Substance: BUMETANIDE
     Indication: HYPERTENSION
     Dates: start: 2015
  16. NYSTATIN. [Concomitant]
     Active Substance: NYSTATIN
  17. VITAMIN D2 [Concomitant]
     Active Substance: ERGOCALCIFEROL
     Dates: start: 20160412
  18. KLOR-CON [Concomitant]
     Active Substance: POTASSIUM CHLORIDE
     Dates: start: 20160412
  19. METOCLOPRAMIDE HCL [Concomitant]
     Active Substance: METOCLOPRAMIDE HYDROCHLORIDE
     Dates: start: 20160718
  20. CYCLOBENZAPRINE. [Concomitant]
     Active Substance: CYCLOBENZAPRINE
  21. LEVEMIR [Concomitant]
     Active Substance: INSULIN DETEMIR
  22. TERCONAZOLE. [Concomitant]
     Active Substance: TERCONAZOLE
  23. MYCOLOG [Concomitant]
     Active Substance: GRAMICIDIN\NEOMYCIN SULFATE\NYSTATIN\TRIAMCINOLONE ACETONIDE
  24. NAPROXEN. [Concomitant]
     Active Substance: NAPROXEN
     Indication: HYPERTENSION
     Dates: start: 2013
  25. CIPROFLOXACIN. [Concomitant]
     Active Substance: CIPROFLOXACIN
     Indication: HYPERTENSION
     Dates: start: 2013
  26. ASPIRIN. [Concomitant]
     Active Substance: ASPIRIN
     Dates: start: 20160412
  27. CARVEDILOL. [Concomitant]
     Active Substance: CARVEDILOL
     Dates: start: 20160524
  28. PRAVASTATIN. [Concomitant]
     Active Substance: PRAVASTATIN
     Indication: HYPERTENSION
     Dates: start: 2015
  29. GABAPENTIN. [Concomitant]
     Active Substance: GABAPENTIN
  30. NOVOLOG [Concomitant]
     Active Substance: INSULIN ASPART
     Dates: start: 20160412
  31. METHYLPREDNISOLONE. [Concomitant]
     Active Substance: METHYLPREDNISOLONE
  32. MUPIROCIN. [Concomitant]
     Active Substance: MUPIROCIN
  33. GENTAMICIN SODIUM [Concomitant]
     Dosage: 0.25 MCG; DAILY
     Route: 048
     Dates: start: 20160429
  34. PRILOSEC [Concomitant]
     Active Substance: OMEPRAZOLE MAGNESIUM
     Indication: GASTROOESOPHAGEAL REFLUX DISEASE
     Dates: start: 20150811
  35. TORSEMIDE. [Concomitant]
     Active Substance: TORSEMIDE
     Indication: HYPERTENSION
     Dates: start: 2013, end: 2014
  36. LISINOPRIL. [Concomitant]
     Active Substance: LISINOPRIL
     Dates: start: 20160412
  37. HYDROCODONE-ACETAMINOPHEN [Concomitant]
     Active Substance: ACETAMINOPHEN\HYDROCODONE
  38. LYRICA [Concomitant]
     Active Substance: PREGABALIN
     Dates: start: 20160412

REACTIONS (6)
  - Chronic kidney disease [Unknown]
  - End stage renal disease [Unknown]
  - Renal failure [Unknown]
  - Renal injury [Unknown]
  - Acute kidney injury [Unknown]
  - Rebound acid hypersecretion [Unknown]

NARRATIVE: CASE EVENT DATE: 20160412
